FAERS Safety Report 10983288 (Version 5)
Quarter: 2015Q3

REPORT INFORMATION
  Report Type: Spontaneous
  Country: FR (occurrence: FR)
  Receive Date: 20150403
  Receipt Date: 20150911
  Transmission Date: 20151125
  Serious: Yes (Disabling, Other)
  Sender: FDA-Public Use
  Company Number: FR-ALLERGAN-1505544US

PATIENT
  Age: 75 Year
  Sex: Female

DRUGS (3)
  1. BOTOX [Suspect]
     Active Substance: ONABOTULINUMTOXINA
     Indication: FACIAL SPASM
     Dosage: UNK
     Route: 030
     Dates: start: 20150304, end: 20150304
  2. BOTOX [Suspect]
     Active Substance: ONABOTULINUMTOXINA
     Dosage: UNK
  3. BOTOX [Suspect]
     Active Substance: ONABOTULINUMTOXINA
     Dosage: UNK
     Route: 030
     Dates: start: 201506, end: 201506

REACTIONS (6)
  - Extraocular muscle paresis [Not Recovered/Not Resolved]
  - Eyelid ptosis [Recovered/Resolved]
  - Torticollis [Not Recovered/Not Resolved]
  - Diplopia [Recovered/Resolved]
  - Posture abnormal [Not Recovered/Not Resolved]
  - Pupillary disorder [Not Recovered/Not Resolved]

NARRATIVE: CASE EVENT DATE: 20150309
